FAERS Safety Report 14752836 (Version 1)
Quarter: 2018Q2

REPORT INFORMATION
  Report Type: Spontaneous
  Country: US (occurrence: US)
  Receive Date: 20180412
  Receipt Date: 20180412
  Transmission Date: 20180711
  Serious: No
  Sender: FDA-Public Use
  Company Number: US-US WORLDMEDS, LLC-USW201803-000402

PATIENT
  Sex: Male
  Weight: 83 kg

DRUGS (13)
  1. VITAMIN D3 [Concomitant]
     Active Substance: CHOLECALCIFEROL
  2. ALPRAZOLAM. [Concomitant]
     Active Substance: ALPRAZOLAM
  3. COENZYME Q10 [Concomitant]
     Active Substance: UBIDECARENONE
  4. NATURE-THROID [Concomitant]
     Active Substance: THYROID, PORCINE
  5. TAMSULOSIN [Concomitant]
     Active Substance: TAMSULOSIN
  6. MAGNESIUM [Concomitant]
     Active Substance: MAGNESIUM
  7. ZINC. [Concomitant]
     Active Substance: ZINC
  8. VITAMIN K [Concomitant]
     Active Substance: PHYTONADIONE
  9. VITAMIN C [Concomitant]
     Active Substance: ASCORBIC ACID
  10. VITAMIN E [Concomitant]
     Active Substance: .ALPHA.-TOCOPHEROL
  11. ACETYLCARNITINE [Concomitant]
     Active Substance: ACETYLCARNITINE
  12. ALBUTEROL. [Concomitant]
     Active Substance: ALBUTEROL
  13. XADAGO [Suspect]
     Active Substance: SAFINAMIDE MESYLATE
     Indication: PARKINSON^S DISEASE
     Dates: start: 201801, end: 20180308

REACTIONS (2)
  - Epistaxis [Unknown]
  - Headache [Unknown]
